FAERS Safety Report 7475801-6 (Version None)
Quarter: 2011Q1

REPORT INFORMATION
  Report Type: 
  Country: None (occurrence: None)
  Receive Date: 20110308
  Receipt Date: 20101208
  Transmission Date: 20110831
  Serious: Yes (Hospitalization)
  Sender: FDA-Public Use
  Company Number: 2010PROUSA00138

PATIENT
  Age: 69 Year
  Sex: Male
  Weight: 81.6 kg

DRUGS (15)
  1. OMEPRAZOLE [Concomitant]
  2. PROVENGE [Suspect]
  3. LISINOPRIL [Concomitant]
  4. NAPROXEN [Concomitant]
  5. LUPRON [Concomitant]
  6. ACIPHEX [Concomitant]
  7. NOVOLOG [Concomitant]
  8. ASPIRIN [Concomitant]
  9. PROVENGE [Suspect]
     Indication: PROSTATE CANCER METASTATIC
     Dosage: 250 ML, SINGLE, 250 ML, SINGLE, INTRAVENOUS
     Route: 042
     Dates: start: 20101025, end: 20101025
  10. PROVENGE [Suspect]
     Indication: PROSTATE CANCER METASTATIC
     Dosage: 250 ML, SINGLE, 250 ML, SINGLE, INTRAVENOUS
     Route: 042
     Dates: start: 20101118, end: 20101118
  11. ZOFRAN [Concomitant]
  12. NILANDRON [Concomitant]
  13. HYDROCHLOROTHIAZIDE [Concomitant]
  14. SENOKOT (SENNA ALEXANDRINA) [Concomitant]
  15. GEMFIBROZIL [Concomitant]

REACTIONS (4)
  - SPINAL CORD COMPRESSION [None]
  - MONOPLEGIA [None]
  - MUSCULAR WEAKNESS [None]
  - HYPOAESTHESIA [None]
